FAERS Safety Report 21778187 (Version 1)
Quarter: 2022Q4

REPORT INFORMATION
  Report Type: Report from Study
  Country: US (occurrence: US)
  Receive Date: 20221226
  Receipt Date: 20221226
  Transmission Date: 20230113
  Serious: Yes (Hospitalization)
  Sender: FDA-Public Use
  Company Number: US-ABBVIE-4249497

PATIENT
  Sex: Male

DRUGS (2)
  1. RINVOQ [Suspect]
     Active Substance: UPADACITINIB
     Indication: Colitis
     Dosage: 45 MILLIGRAM, DRUG START DATE-2022
     Route: 048
  2. RINVOQ [Suspect]
     Active Substance: UPADACITINIB
     Indication: Colitis
     Dosage: 45 MILLIGRAM, DRUG START DATE: 13 OCT 2022, DRUG END DATE-2022
     Route: 048

REACTIONS (2)
  - Procedural complication [Unknown]
  - Infection [Unknown]

NARRATIVE: CASE EVENT DATE: 20220101
